FAERS Safety Report 9868300 (Version 1)
Quarter: 2014Q1

REPORT INFORMATION
  Report Type: Spontaneous
  Country: CA (occurrence: CA)
  Receive Date: 20140204
  Receipt Date: 20140204
  Transmission Date: 20141002
  Serious: Yes (Disabling, Other)
  Sender: FDA-Public Use
  Company Number: CA-SA-2014SA012106

PATIENT
  Sex: 0

DRUGS (1)
  1. THYMOGLOBULIN [Suspect]
     Indication: RENAL TRANSPLANT
     Dosage: ONLY ONE DOSE
     Route: 065

REACTIONS (3)
  - Thrombosis [Unknown]
  - Transplant dysfunction [Unknown]
  - Hypotension [Unknown]
